FAERS Safety Report 7980128-X (Version None)
Quarter: 2011Q4

REPORT INFORMATION
  Report Type: 
  Country: None (occurrence: None)
  Receive Date: 20111212
  Receipt Date: 20111128
  Transmission Date: 20120403
  Serious: Yes (Hospitalization, Other)
  Sender: FDA-Public Use
  Company Number: 7096062

PATIENT
  Age: 31 Year
  Sex: Female

DRUGS (1)
  1. LEVOTHYROXINE SODIUM [Suspect]
     Indication: AUTOIMMUNE THYROIDITIS
     Dosage: 75 MCG

REACTIONS (8)
  - PREGNANCY [None]
  - ADRENOCORTICAL INSUFFICIENCY ACUTE [None]
  - BLOOD THYROID STIMULATING HORMONE INCREASED [None]
  - MATERNAL EXPOSURE DURING PREGNANCY [None]
  - POLYGLANDULAR AUTOIMMUNE SYNDROME TYPE II [None]
  - HYPOGLYCAEMIA [None]
  - DIABETES INSIPIDUS [None]
  - FOETAL EXPOSURE DURING PREGNANCY [None]
